FAERS Safety Report 11142124 (Version 2)
Quarter: 2015Q3

REPORT INFORMATION
  Report Type: Spontaneous
  Country: JP (occurrence: JP)
  Receive Date: 20150527
  Receipt Date: 20150703
  Transmission Date: 20151125
  Serious: Yes (Hospitalization, Other)
  Sender: FDA-Public Use
  Company Number: GXJP2015JP000800

PATIENT
  Sex: Female
  Weight: 49 kg

DRUGS (7)
  1. CEFTRIAXONE. [Suspect]
     Active Substance: CEFTRIAXONE
     Indication: MENINGITIS
     Dosage: 2 G, BID
     Route: 042
  2. CEFTRIAXONE. [Suspect]
     Active Substance: CEFTRIAXONE
     Dosage: 2 G, BID
     Route: 042
  3. CELECOXIB. [Concomitant]
     Active Substance: CELECOXIB
     Dosage: 200 MG, UNK
     Route: 065
  4. CEFCAPENE PIVOXIL [Suspect]
     Active Substance: CEFCAPENE PIVOXIL
     Indication: ANTIBIOTIC THERAPY
     Dosage: 300 MG, TID
     Route: 065
  5. CEFAZOLIN [Suspect]
     Active Substance: CEFAZOLIN
     Indication: ANTIBIOTIC THERAPY
     Dosage: 1 G, Q12H
     Route: 065
  6. DICLOFENAC SODIUM. [Concomitant]
     Active Substance: DICLOFENAC SODIUM
     Indication: PRODUCT USED FOR UNKNOWN INDICATION
     Dosage: 50 MG, UNK
     Route: 065
  7. CELECOXIB. [Concomitant]
     Active Substance: CELECOXIB
     Indication: PRODUCT USED FOR UNKNOWN INDICATION
     Dosage: 200 MG, UNK
     Route: 065

REACTIONS (3)
  - Meningitis enterococcal [Recovered/Resolved]
  - Pyrexia [Recovered/Resolved]
  - CSF cell count increased [Recovered/Resolved]
